FAERS Safety Report 15779745 (Version 1)
Quarter: 2019Q1

REPORT INFORMATION
  Report Type: Report from Study
  Country: None (occurrence: BR)
  Receive Date: 20190101
  Receipt Date: 20190101
  Transmission Date: 20190417
  Serious: Yes (Hospitalization, Disabling, Other)
  Sender: FDA-Public Use
  Company Number: BR-ABBVIE-18K-020-2604686-00

PATIENT
  Age: 40 Year
  Sex: Female
  Weight: 54 kg

DRUGS (9)
  1. DIAZEPAM. [Concomitant]
     Active Substance: DIAZEPAM
     Indication: DEPRESSION
     Dosage: 1 AT NIGHT AND 1 IN THE MORNING
  2. HUMIRA [Suspect]
     Active Substance: ADALIMUMAB
     Route: 058
     Dates: start: 2017
  3. DELLER [Concomitant]
     Indication: DEPRESSION
     Dosage: 1 AT NIGHT
  4. HUMIRA [Suspect]
     Active Substance: ADALIMUMAB
     Indication: CROHN^S DISEASE
     Dosage: LOADING DOSE??WEEK 0
     Route: 058
     Dates: start: 20170101, end: 20170101
  5. NEVRALGEX [Concomitant]
     Indication: HEADACHE
  6. AZATHIOPRINE. [Concomitant]
     Active Substance: AZATHIOPRINE
     Indication: CROHN^S DISEASE
  7. HUMIRA [Suspect]
     Active Substance: ADALIMUMAB
     Dosage: LOADING DOSE?WEEK TWO
     Route: 058
     Dates: start: 201701, end: 201701
  8. FLUOXETINE [Concomitant]
     Active Substance: FLUOXETINE HYDROCHLORIDE
     Indication: ANXIETY
  9. NEVRALGEX [Concomitant]
     Indication: MIGRAINE

REACTIONS (10)
  - Transient ischaemic attack [Recovering/Resolving]
  - Migraine [Recovering/Resolving]
  - Visual impairment [Recovering/Resolving]
  - Visual impairment [Recovered/Resolved]
  - Anaemia [Recovered/Resolved]
  - Lithiasis [Unknown]
  - Headache [Recovering/Resolving]
  - Abdominal pain upper [Recovered/Resolved]
  - Stress [Recovered/Resolved]
  - Nervousness [Recovered/Resolved]

NARRATIVE: CASE EVENT DATE: 201809
